FAERS Safety Report 7197713-8 (Version None)
Quarter: 2010Q4

REPORT INFORMATION
  Report Type: 
  Country: None (occurrence: None)
  Receive Date: 20101210
  Receipt Date: 20101203
  Transmission Date: 20110411
  Serious: Yes (Life-Threatening, Hospitalization)
  Sender: FDA-Public Use
  Company Number: 2010SP063438

PATIENT
  Age: 80 Year
  Sex: Female

DRUGS (1)
  1. TEMOZOLOMIDE [Suspect]
     Indication: GLIOBLASTOMA MULTIFORME
     Dosage: 250 MG;QD;IV
     Route: 042
     Dates: start: 20100928, end: 20101002

REACTIONS (3)
  - CEREBRAL HAEMORRHAGE [None]
  - CONVULSION [None]
  - THROMBOCYTOPENIA [None]
